FAERS Safety Report 21107808 (Version 1)
Quarter: 2022Q3

REPORT INFORMATION
  Report Type: Spontaneous
  Country: US (occurrence: US)
  Receive Date: 20220720
  Receipt Date: 20220720
  Transmission Date: 20221027
  Serious: No
  Sender: FDA-Public Use
  Company Number: US-ELI_LILLY_AND_COMPANY-US202207007313

PATIENT
  Sex: Female

DRUGS (2)
  1. BASAGLAR [Suspect]
     Active Substance: INSULIN GLARGINE
     Indication: Diabetes mellitus
     Dosage: UNK UNK, UNKNOWN
     Route: 065
     Dates: start: 202202
  2. BASAGLAR [Suspect]
     Active Substance: INSULIN GLARGINE
     Dosage: 33 U, UNKNOWN
     Route: 065
     Dates: start: 20220714

REACTIONS (2)
  - Incorrect dose administered [Unknown]
  - Injection site pain [Unknown]
